FAERS Safety Report 10250059 (Version 1)
Quarter: 2014Q2

REPORT INFORMATION
  Report Type: Spontaneous
  Country: US (occurrence: US)
  Receive Date: 20140620
  Receipt Date: 20140620
  Transmission Date: 20141212
  Serious: No
  Sender: FDA-Public Use
  Company Number: US-BRISTOL-MYERS SQUIBB COMPANY-20615217

PATIENT
  Age: 67 Year
  Sex: Female
  Weight: 83.44 kg

DRUGS (6)
  1. ELIQUIS [Suspect]
     Dates: start: 20140403
  2. LEVOTHYROXINE [Concomitant]
  3. METOPROLOL [Concomitant]
  4. CARDIZEM [Concomitant]
  5. ZANTAC [Concomitant]
  6. VITAMINS + HERBS [Concomitant]
     Dates: start: 20140403

REACTIONS (1)
  - Arthritis [Unknown]
